FAERS Safety Report 24595199 (Version 1)
Quarter: 2024Q4

REPORT INFORMATION
  Report Type: Spontaneous
  Country: US (occurrence: US)
  Receive Date: 20241108
  Receipt Date: 20241108
  Transmission Date: 20250115
  Serious: No
  Sender: JOHNSON AND JOHNSON
  Company Number: US-JNJFOC-20241062945

PATIENT
  Age: 63 Year
  Sex: Male

DRUGS (4)
  1. DARZALEX FASPRO [Suspect]
     Active Substance: DARATUMUMAB\HYALURONIDASE-FIHJ
     Indication: Product used for unknown indication
     Route: 058
     Dates: start: 20241021
  2. SINGULAIR [Concomitant]
     Active Substance: MONTELUKAST SODIUM
  3. TYLENOL [Concomitant]
     Active Substance: ACETAMINOPHEN
  4. VELCADE [Concomitant]
     Active Substance: BORTEZOMIB

REACTIONS (6)
  - Chills [Unknown]
  - Pain in jaw [Unknown]
  - Chest pain [Unknown]
  - Pain [Unknown]
  - Tremor [Unknown]
  - Musculoskeletal pain [Unknown]

NARRATIVE: CASE EVENT DATE: 20241021
